FAERS Safety Report 4915253-0 (Version None)
Quarter: 2006Q1

REPORT INFORMATION
  Report Type: 
  Country: None (occurrence: None)
  Receive Date: 20060216
  Receipt Date: 20060216
  Transmission Date: 20060701
  Serious: Yes (Hospitalization)
  Sender: FDA-Public Use
  Company Number: None

PATIENT
  Sex: Female
  Weight: 68.9467 kg

DRUGS (10)
  1. DILANTIN [Suspect]
     Indication: CONVULSION
     Dosage: PO   PRIOR TO ADMISSION
     Route: 048
  2. METAMUCIL [Concomitant]
  3. M.V.I. [Concomitant]
  4. GABAPENTIN [Concomitant]
  5. CALCIUM GLUCONATE [Concomitant]
  6. DEPAKOTE [Concomitant]
  7. PERIOGARD [Concomitant]
  8. LEVOXYL [Concomitant]
  9. PAROXETINE HCL [Concomitant]
  10. RISPERDAL [Concomitant]

REACTIONS (4)
  - ANTICONVULSANT DRUG LEVEL INCREASED [None]
  - BALANCE DISORDER [None]
  - NAUSEA [None]
  - VOMITING [None]
